FAERS Safety Report 6758557-1 (Version None)
Quarter: 2010Q2

REPORT INFORMATION
  Report Type: 
  Country: None (occurrence: None)
  Receive Date: 20100607
  Receipt Date: 20100526
  Transmission Date: 20101027
  Serious: Yes (Hospitalization)
  Sender: FDA-Public Use
  Company Number: US-ELI_LILLY_AND_COMPANY-US201004007307

PATIENT
  Age: 60 Year
  Sex: Male
  Weight: 136.5 kg

DRUGS (7)
  1. EFFIENT [Suspect]
     Indication: PERCUTANEOUS CORONARY INTERVENTION
     Dosage: 60 MG, OTHER
     Dates: start: 20100407
  2. EFFIENT [Suspect]
     Dosage: 10 MG, DAILY (1/D)
     Dates: start: 20100407, end: 20100410
  3. METFORMIN [Concomitant]
  4. ASPIRIN [Concomitant]
  5. ACCUPRIL [Concomitant]
  6. ZOCOR [Concomitant]
  7. COREG [Concomitant]

REACTIONS (2)
  - DIZZINESS [None]
  - HAEMOGLOBIN DECREASED [None]
